FAERS Safety Report 18991466 (Version 2)
Quarter: 2021Q2

REPORT INFORMATION
  Report Type: Report from Study
  Country: BR (occurrence: BR)
  Receive Date: 20210310
  Receipt Date: 20210407
  Transmission Date: 20210717
  Serious: Yes (Other)
  Sender: FDA-Public Use
  Company Number: NVSC2021BR049180

PATIENT
  Sex: Male

DRUGS (3)
  1. AMLODIPINE [Concomitant]
     Active Substance: AMLODIPINE BESYLATE
     Indication: PRODUCT USED FOR UNKNOWN INDICATION
     Dosage: 2 DF
     Route: 065
  2. DIOVAN AMLO FIX [Suspect]
     Active Substance: AMLODIPINE\VALSARTAN
     Indication: PRODUCT USED FOR UNKNOWN INDICATION
     Dosage: 1 DF, 80/5, STARTED 10 YEARS AGO, STOPED 2 YEAR AGO
     Route: 065
     Dates: end: 2020
  3. DIOVAN [Suspect]
     Active Substance: VALSARTAN
     Indication: PRODUCT USED FOR UNKNOWN INDICATION
     Dosage: 1 DF, QD,80
     Route: 065

REACTIONS (10)
  - Neuropathy peripheral [Unknown]
  - Fall [Unknown]
  - Malaise [Recovering/Resolving]
  - Peripheral swelling [Recovering/Resolving]
  - Hypotension [Recovering/Resolving]
  - Dizziness [Recovering/Resolving]
  - Diabetes mellitus [Unknown]
  - Illness [Unknown]
  - Joint swelling [Unknown]
  - Blood pressure fluctuation [Unknown]
